FAERS Safety Report 23012064 (Version 4)
Quarter: 2024Q1

REPORT INFORMATION
  Report Type: Spontaneous
  Country: US (occurrence: US)
  Receive Date: 20230930
  Receipt Date: 20240228
  Transmission Date: 20240409
  Serious: Yes (Hospitalization)
  Sender: FDA-Public Use
  Company Number: US-SA-SAC20230928000110

PATIENT
  Age: 25 Year
  Sex: Female

DRUGS (2)
  1. DUPIXENT [Suspect]
     Active Substance: DUPILUMAB
     Indication: Nasal polyps
     Dosage: 300 MG, QOW
     Route: 058
     Dates: start: 202303
  2. LUNESTA [Concomitant]
     Active Substance: ESZOPICLONE

REACTIONS (3)
  - Hospitalisation [Unknown]
  - Arthralgia [Recovering/Resolving]
  - Skin lesion [Unknown]

NARRATIVE: CASE EVENT DATE: 20230101
